FAERS Safety Report 6126993-2 (Version None)
Quarter: 2009Q1

REPORT INFORMATION
  Report Type: 
  Country: None (occurrence: None)
  Receive Date: 20090320
  Receipt Date: 20090313
  Transmission Date: 20090719
  Serious: Yes (Hospitalization)
  Sender: FDA-Public Use
  Company Number: PL-MERCK-0903POL00006

PATIENT
  Age: 6 Month
  Sex: Male

DRUGS (3)
  1. SINGULAIR [Suspect]
     Route: 048
     Dates: start: 20090101, end: 20090201
  2. CETIRIZINE HYDROCHLORIDE [Concomitant]
     Route: 065
  3. ANTIMICROBIAL (UNSPECIFIED) [Concomitant]
     Route: 065

REACTIONS (11)
  - ABDOMINAL PAIN [None]
  - AGGRESSION [None]
  - AGITATION [None]
  - ANXIETY [None]
  - DRY MOUTH [None]
  - FACE OEDEMA [None]
  - HEPATIC ENZYME INCREASED [None]
  - INITIAL INSOMNIA [None]
  - OFF LABEL USE [None]
  - POLYDIPSIA [None]
  - SLEEP DISORDER [None]
